FAERS Safety Report 7505598-2 (Version None)
Quarter: 2011Q2

REPORT INFORMATION
  Report Type: 
  Country: None (occurrence: None)
  Receive Date: 20110526
  Receipt Date: 20110520
  Transmission Date: 20111010
  Serious: Yes (Death, Other)
  Sender: FDA-Public Use
  Company Number: CN-PFIZER INC-2011093399

PATIENT
  Age: 65 Year
  Sex: Male
  Weight: 53 kg

DRUGS (6)
  1. VFEND [Suspect]
     Dosage: 200 MG, 1X/DAY
     Route: 042
     Dates: start: 20110426, end: 20110427
  2. CANCIDAS [Concomitant]
     Indication: PULMONARY MYCOSIS
     Dosage: 70 UNK, UNK
     Dates: start: 20110428, end: 20110428
  3. LEVOFLOXACIN [Concomitant]
     Indication: ANTI-INFECTIVE THERAPY
     Dosage: UNK
     Dates: start: 20110418
  4. ITRACONAZOLE [Concomitant]
     Indication: PULMONARY MYCOSIS
     Dosage: 0.4 UNK, 1X/DAY
     Dates: start: 20110421, end: 20110424
  5. VFEND [Suspect]
     Indication: PULMONARY MYCOSIS
     Dosage: 400 MG, 1X/DAY
     Route: 042
     Dates: start: 20110425, end: 20110426
  6. CANCIDAS [Concomitant]
     Dosage: 50 UNK, UNK
     Dates: start: 20110429, end: 20110429

REACTIONS (10)
  - HALLUCINATION [None]
  - VISUAL IMPAIRMENT [None]
  - CARDIOMYOPATHY [None]
  - COMA [None]
  - OVERDOSE [None]
  - PULMONARY OEDEMA [None]
  - DELIRIUM [None]
  - ENCEPHALOPATHY [None]
  - CLUTTERING [None]
  - HYPOTENSION [None]
